FAERS Safety Report 5340415-0 (Version None)
Quarter: 2007Q2

REPORT INFORMATION
  Report Type: 
  Country: None (occurrence: None)
  Receive Date: 20070405
  Receipt Date: 20061220
  Transmission Date: 20071010
  Serious: No
  Sender: FDA-Public Use
  Company Number: US200612003712

PATIENT
  Age: 38 Year
  Sex: Female

DRUGS (6)
  1. CYMBALTA [Suspect]
     Indication: DEPRESSION
     Dosage: SEE IMAGE
     Dates: start: 20060901
  2. PROZAC [Suspect]
     Indication: DEPRESSION
     Dates: start: 19880101
  3. GEODON [Concomitant]
  4. LORATADINE [Concomitant]
  5. MULTIVITAMIN ^LAPPE^ (VITAMINS NOS) [Concomitant]
  6. PREDNISONE TAB [Concomitant]

REACTIONS (4)
  - AGGRESSION [None]
  - DELUSION [None]
  - PARANOIA [None]
  - PSYCHIATRIC SYMPTOM [None]
